FAERS Safety Report 5899480-4 (Version None)
Quarter: 2008Q3

REPORT INFORMATION
  Report Type: 
  Country: None (occurrence: None)
  Receive Date: 20080926
  Receipt Date: 20080916
  Transmission Date: 20090109
  Serious: Yes (Hospitalization)
  Sender: FDA-Public Use
  Company Number: US-JNJFOC-20080903825

PATIENT
  Sex: Male
  Weight: 74.84 kg

DRUGS (10)
  1. FENTANYL TRANSDERMAL SYSTEM [Suspect]
     Indication: INTERVERTEBRAL DISC DEGENERATION
     Route: 062
  2. FENTANYL TRANSDERMAL SYSTEM [Suspect]
     Indication: SPINAL COLUMN STENOSIS
     Route: 062
  3. DURAGESIC-100 [Suspect]
     Indication: INTERVERTEBRAL DISC DEGENERATION
     Route: 062
  4. DURAGESIC-100 [Suspect]
     Indication: SPINAL COLUMN STENOSIS
     Route: 062
  5. LYRICA [Concomitant]
     Indication: PAIN
     Route: 048
  6. MORPHINE [Concomitant]
     Indication: PAIN
     Dosage: EXTENDED RELEASE
     Route: 048
  7. MORPHINE [Concomitant]
     Dosage: IMMEDIATE RELEASE
     Route: 048
  8. CELEXA [Concomitant]
     Indication: DEPRESSION
     Route: 048
  9. ATIVAN [Concomitant]
     Indication: DEPRESSION
     Route: 048
  10. FIORICET W/ CODEINE [Concomitant]
     Indication: PAIN
     Dosage: 50MG-325MG-40MG-30MG CAPSULES
     Route: 048

REACTIONS (8)
  - ADMINISTRATION SITE REACTION [None]
  - BACK PAIN [None]
  - BRAIN NEOPLASM [None]
  - FALL [None]
  - GASTRIC DISORDER [None]
  - HEART RATE IRREGULAR [None]
  - INTERVERTEBRAL DISC DEGENERATION [None]
  - WRONG TECHNIQUE IN DRUG USAGE PROCESS [None]
